FAERS Safety Report 11111539 (Version 1)
Quarter: 2015Q2

REPORT INFORMATION
  Report Type: Spontaneous
  Country: CN (occurrence: CN)
  Receive Date: 20150514
  Receipt Date: 20150514
  Transmission Date: 20150821
  Serious: Yes (Other)
  Sender: FDA-Public Use
  Company Number: CN-JNJFOC-20150412587

PATIENT
  Age: 36 Year
  Sex: Male

DRUGS (2)
  1. DAKTARIN [Suspect]
     Active Substance: MICONAZOLE NITRATE
     Route: 061
  2. DAKTARIN [Suspect]
     Active Substance: MICONAZOLE NITRATE
     Indication: PRURITUS
     Route: 061
     Dates: start: 20150412

REACTIONS (2)
  - Pain in extremity [Not Recovered/Not Resolved]
  - Abasia [Unknown]

NARRATIVE: CASE EVENT DATE: 20150413
